FAERS Safety Report 12324176 (Version 1)
Quarter: 2016Q2

REPORT INFORMATION
  Report Type: Report from Study
  Country: US (occurrence: US)
  Receive Date: 20160502
  Receipt Date: 20160502
  Transmission Date: 20160815
  Serious: No
  Sender: FDA-Public Use
  Company Number: US-ABBVIE-15P-163-1454716-00

PATIENT
  Age: 52 Year
  Sex: Male
  Weight: 73.55 kg

DRUGS (12)
  1. ANDROGEL [Suspect]
     Active Substance: TESTOSTERONE
     Indication: BLOOD TESTOSTERONE DECREASED
     Route: 061
     Dates: start: 2015
  2. CALCIUM [Concomitant]
     Active Substance: CALCIUM
     Indication: VITAMIN SUPPLEMENTATION
     Route: 048
  3. FISH OIL [Concomitant]
     Active Substance: FISH OIL
     Indication: VITAMIN SUPPLEMENTATION
     Route: 065
  4. SALT TABLETS [Concomitant]
     Active Substance: SODIUM CHLORIDE
     Indication: UNEVALUABLE EVENT
     Route: 065
  5. ANDROGEL [Suspect]
     Active Substance: TESTOSTERONE
     Route: 061
     Dates: start: 2014, end: 2015
  6. BENEFIBER [Concomitant]
     Active Substance: STARCH, WHEAT
     Indication: UNEVALUABLE EVENT
     Route: 048
  7. CAL-AMO [Concomitant]
     Indication: VITAMIN SUPPLEMENTATION
     Route: 065
  8. ANDROGEL [Suspect]
     Active Substance: TESTOSTERONE
     Route: 061
     Dates: start: 2013, end: 2014
  9. SAW PALMETTO [Concomitant]
     Active Substance: SAW PALMETTO
     Indication: VITAMIN SUPPLEMENTATION
     Route: 065
  10. UNKNOWN ELECTROLYTE SUPPLEMENT [Concomitant]
     Indication: UNEVALUABLE EVENT
  11. PROBIOTICS [Concomitant]
     Active Substance: PROBIOTICS NOS
     Indication: VITAMIN SUPPLEMENTATION
  12. MAGNESIUM [Concomitant]
     Active Substance: MAGNESIUM
     Indication: VITAMIN SUPPLEMENTATION
     Route: 065

REACTIONS (3)
  - Blood testosterone decreased [Recovered/Resolved]
  - Blood testosterone decreased [Recovered/Resolved]
  - Joint swelling [Not Recovered/Not Resolved]

NARRATIVE: CASE EVENT DATE: 2014
